FAERS Safety Report 7609122-5 (Version None)
Quarter: 2011Q3

REPORT INFORMATION
  Report Type: 
  Country: None (occurrence: None)
  Receive Date: 20110714
  Receipt Date: 20110705
  Transmission Date: 20111222
  Serious: Yes (Hospitalization)
  Sender: FDA-Public Use
  Company Number: US-JNJFOC-20110701561

PATIENT
  Sex: Male
  Weight: 55.2 kg

DRUGS (4)
  1. INFLIXIMAB, RECOMBINANT [Suspect]
     Route: 042
  2. PREDNISONE [Concomitant]
  3. INFLIXIMAB, RECOMBINANT [Suspect]
     Indication: INFLAMMATORY BOWEL DISEASE
     Route: 042
     Dates: start: 20100106
  4. INFLIXIMAB, RECOMBINANT [Suspect]
     Route: 042
     Dates: start: 20110422

REACTIONS (1)
  - GASTROENTERITIS VIRAL [None]
